FAERS Safety Report 23592434 (Version 1)
Quarter: 2024Q1

REPORT INFORMATION
  Report Type: Spontaneous
  Country: US (occurrence: US)
  Receive Date: 20240304
  Receipt Date: 20240304
  Transmission Date: 20240410
  Serious: Yes (Other)
  Sender: FDA-Public Use
  Company Number: US-BRISTOL-MYERS SQUIBB COMPANY-2024-033788

PATIENT
  Age: 73 Year
  Sex: Male

DRUGS (1)
  1. LENALIDOMIDE [Suspect]
     Active Substance: LENALIDOMIDE
     Indication: Plasma cell myeloma
     Dosage: TAKE 1 CAPSULE (25MG) BY MOUTH EVERY DAY ON DAYS 1-14, THEN 1 WEEK OFF EVERY 21 DAY CYCLE
     Route: 048
     Dates: start: 20240114

REACTIONS (2)
  - Product dose omission issue [Recovered/Resolved]
  - Off label use [Unknown]
